FAERS Safety Report 7679864-4 (Version None)
Quarter: 2011Q3

REPORT INFORMATION
  Report Type: 
  Country: None (occurrence: None)
  Receive Date: 20110812
  Receipt Date: 20110808
  Transmission Date: 20111222
  Serious: Yes (Other)
  Sender: FDA-Public Use
  Company Number: US-PFIZER INC-2011181264

PATIENT
  Sex: Female

DRUGS (1)
  1. SUTENT [Suspect]
     Dosage: UNK

REACTIONS (7)
  - CARCINOID SYNDROME [None]
  - FATIGUE [None]
  - HEPATIC LESION [None]
  - CARCINOID TUMOUR [None]
  - SMALL INTESTINAL OBSTRUCTION [None]
  - PAIN [None]
  - DISEASE PROGRESSION [None]
